FAERS Safety Report 15631012 (Version 1)
Quarter: 2018Q4

REPORT INFORMATION
  Report Type: Spontaneous
  Country: HR (occurrence: HR)
  Receive Date: 20181119
  Receipt Date: 20181119
  Transmission Date: 20190205
  Serious: Yes (Other)
  Sender: FDA-Public Use
  Company Number: HR-AMGEN-HRVSP2018161868

PATIENT
  Age: 35 Year
  Sex: Female

DRUGS (35)
  1. ARANESP [Suspect]
     Active Substance: DARBEPOETIN ALFA
     Dosage: 60 MG, QWK
     Route: 058
     Dates: start: 201608
  2. TACROLIMUS. [Concomitant]
     Active Substance: TACROLIMUS
     Dosage: UNK
  3. NEBIVOLOL. [Concomitant]
     Active Substance: NEBIVOLOL
     Dosage: UNK
  4. FERROUS FUMARATE [Concomitant]
     Active Substance: FERROUS FUMARATE
     Dosage: UNK
  5. TACROLIMUS MONOHYDRATE [Concomitant]
     Active Substance: TACROLIMUS
     Dosage: 6 MG, UNK
  6. CALCIUM ACETATE. [Concomitant]
     Active Substance: CALCIUM ACETATE
     Dosage: UNK
  7. MAGNESIUM CARBONATE [Concomitant]
     Active Substance: MAGNESIUM CARBONATE
     Dosage: UNK
  8. DEXTRIFERRONUM [Concomitant]
     Dosage: UNK
  9. ACIDUM FOLICUM [Concomitant]
     Active Substance: FOLIC ACID
     Dosage: UNK
  10. ARANESP [Suspect]
     Active Substance: DARBEPOETIN ALFA
     Dosage: 60 MG, QWK
     Route: 058
     Dates: start: 201612
  11. ARANESP [Suspect]
     Active Substance: DARBEPOETIN ALFA
     Dosage: 60 MG, QWK
     Route: 058
     Dates: start: 201710
  12. PREDNISOLONE. [Concomitant]
     Active Substance: PREDNISOLONE
     Dosage: UNK
  13. ARANESP [Suspect]
     Active Substance: DARBEPOETIN ALFA
     Dosage: 30 MG, QMO
     Route: 065
     Dates: start: 201708
  14. URAPIDIL [Concomitant]
     Active Substance: URAPIDIL
     Dosage: UNK
  15. LACIDIPINA [Concomitant]
     Dosage: UNK
  16. ACIDUM MYCOPHENOLICUM [Concomitant]
     Dosage: 720 MG, BID
  17. PANTOPRAZOL [Concomitant]
     Active Substance: PANTOPRAZOLE SODIUM
     Dosage: 40 MG, UNK
  18. AMLODIPINE [Concomitant]
     Active Substance: AMLODIPINE BESYLATE
     Dosage: 5 MG, BID
  19. ARANESP [Suspect]
     Active Substance: DARBEPOETIN ALFA
     Dosage: 60 MG, QWK
     Route: 058
     Dates: start: 201610
  20. ARANESP [Suspect]
     Active Substance: DARBEPOETIN ALFA
     Dosage: 60 MG, QWK
     Route: 058
     Dates: start: 201611
  21. ARANESP [Suspect]
     Active Substance: DARBEPOETIN ALFA
     Dosage: 60 MG, QWK
     Route: 058
     Dates: start: 201701
  22. PARICALCITOLUM [Concomitant]
     Dosage: UNK
  23. FOLIC ACID. [Concomitant]
     Active Substance: FOLIC ACID
     Dosage: 10 MG, UNK
  24. ARANESP [Suspect]
     Active Substance: DARBEPOETIN ALFA
     Dosage: 30 MG, QMO
     Route: 065
     Dates: start: 201707
  25. ARANESP [Suspect]
     Active Substance: DARBEPOETIN ALFA
     Dosage: 60 MG, Q2WK
     Route: 058
     Dates: start: 201711
  26. CALCITRIOL. [Concomitant]
     Active Substance: CALCITRIOL
     Dosage: 0.5 MUG, UNK
  27. ARANESP [Suspect]
     Active Substance: DARBEPOETIN ALFA
     Dosage: 60 MG, Q2WK
     Route: 058
     Dates: start: 201706
  28. ARANESP [Suspect]
     Active Substance: DARBEPOETIN ALFA
     Dosage: 60 MG, QWK
     Route: 058
     Dates: start: 201712
  29. VITAMIN B12 [Concomitant]
     Active Substance: CYANOCOBALAMIN
     Dosage: UNK
  30. EPOETIN BETA [Concomitant]
     Active Substance: ERYTHROPOIETIN
     Dosage: 4000 IU, QWK
     Route: 058
     Dates: start: 200904
  31. ARANESP [Suspect]
     Active Substance: DARBEPOETIN ALFA
     Indication: NEPHROGENIC ANAEMIA
     Dosage: 60 MG, QWK
     Route: 058
     Dates: start: 201605
  32. ARANESP [Suspect]
     Active Substance: DARBEPOETIN ALFA
     Dosage: 60 MG, Q2WK
     Route: 058
     Dates: start: 201612
  33. ARANESP [Suspect]
     Active Substance: DARBEPOETIN ALFA
     Dosage: 60 MG, Q2WK
     Route: 058
     Dates: start: 201704
  34. ARANESP [Suspect]
     Active Substance: DARBEPOETIN ALFA
     Dosage: 30 MG, QMO
     Route: 065
     Dates: start: 201709
  35. FUROSEMIDE. [Concomitant]
     Active Substance: FUROSEMIDE
     Dosage: AS NECESSARY

REACTIONS (3)
  - Renal transplant [Unknown]
  - Gastritis erosive [Unknown]
  - Haemorrhoids [Unknown]

NARRATIVE: CASE EVENT DATE: 201708
